FAERS Safety Report 6956378-8 (Version None)
Quarter: 2010Q3

REPORT INFORMATION
  Report Type: 
  Country: None (occurrence: None)
  Receive Date: 20100830
  Receipt Date: 20100824
  Transmission Date: 20110219
  Serious: Yes (Other)
  Sender: FDA-Public Use
  Company Number: A0877992A

PATIENT
  Age: 35 Year
  Sex: Female

DRUGS (1)
  1. PROMACTA [Suspect]
     Dosage: 50MG ALTERNATE DAYS
     Dates: end: 20091101

REACTIONS (2)
  - ARTHRALGIA [None]
  - NEUROPATHY PERIPHERAL [None]
